FAERS Safety Report 20313180 (Version 2)
Quarter: 2022Q1

REPORT INFORMATION
  Report Type: Spontaneous
  Country: BR (occurrence: BR)
  Receive Date: 20220109
  Receipt Date: 20220303
  Transmission Date: 20220423
  Serious: Yes (Other)
  Sender: FDA-Public Use
  Company Number: BR-SA-2020SA337394

PATIENT
  Age: 37 Year
  Sex: Female
  Weight: 58.7 kg

DRUGS (3)
  1. ENOXAPARIN SODIUM [Suspect]
     Active Substance: ENOXAPARIN SODIUM
     Dosage: UNK (SHE USES DOSES HIGHER THAN 20 MG. SHE FRACTIONATES INTO A LARGER SYRINGE)
  2. ENOXAPARIN SODIUM [Suspect]
     Active Substance: ENOXAPARIN SODIUM
     Dosage: 40 MG FOR 30 DAYS
     Dates: end: 20210505
  3. ASPIRIN [Concomitant]
     Active Substance: ASPIRIN
     Dosage: 100 MG, QD

REACTIONS (6)
  - Teratoma [Unknown]
  - Heavy menstrual bleeding [Unknown]
  - Menstrual disorder [Unknown]
  - Hypoglycaemia [Unknown]
  - Exposure during pregnancy [Unknown]
  - Product packaging issue [Unknown]
